FAERS Safety Report 4325501-6 (Version None)
Quarter: 2004Q1

REPORT INFORMATION
  Report Type: 
  Country: None (occurrence: None)
  Receive Date: 20040324
  Receipt Date: 20040318
  Transmission Date: 20041129
  Serious: Yes (Hospitalization)
  Sender: FDA-Public Use
  Company Number: 2004204331JP

PATIENT
  Age: 72 Year
  Sex: Male

DRUGS (3)
  1. CAMPTOSAR [Suspect]
     Indication: SMALL CELL LUNG CANCER STAGE UNSPECIFIED
     Dosage: 80 MG, IV DRIP
     Route: 041
     Dates: start: 20040225, end: 20040225
  2. CISPLATIN [Suspect]
     Indication: SMALL CELL LUNG CANCER STAGE UNSPECIFIED
     Dosage: IV DRIP
     Route: 041
  3. KYTRIL [Suspect]

REACTIONS (1)
  - DELIRIUM [None]
